FAERS Safety Report 18417957 (Version 2)
Quarter: 2020Q4

REPORT INFORMATION
  Report Type: Spontaneous
  Country: JP (occurrence: JP)
  Receive Date: 20201022
  Receipt Date: 20201117
  Transmission Date: 20210114
  Serious: Yes (Other)
  Sender: FDA-Public Use
  Company Number: JP-B.I. PHARMACEUTICALS,INC./RIDGEFIELD-2020-BI-056630

PATIENT
  Age: 64 Year
  Sex: Male
  Weight: 59.6 kg

DRUGS (1)
  1. PRIZBIND [Suspect]
     Active Substance: IDARUCIZUMAB
     Indication: PROCOAGULANT THERAPY
     Route: 042
     Dates: start: 20200801, end: 20200801

REACTIONS (1)
  - Cerebellar infarction [Unknown]

NARRATIVE: CASE EVENT DATE: 20200906
